FAERS Safety Report 5741970-9 (Version None)
Quarter: 2008Q2

REPORT INFORMATION
  Report Type: 
  Country: None (occurrence: None)
  Receive Date: 20080519
  Receipt Date: 20080506
  Transmission Date: 20081010
  Serious: Yes (Other)
  Sender: FDA-Public Use
  Company Number: GB-ELI_LILLY_AND_COMPANY-GB200801002872

PATIENT
  Sex: Female
  Weight: 55 kg

DRUGS (5)
  1. ZYPREXA [Suspect]
     Indication: AGGRESSION
     Dosage: 5 MG, UNK
     Route: 048
     Dates: start: 20071206, end: 20080118
  2. LACTULOSE [Concomitant]
     Indication: CONSTIPATION
     Dosage: 10 ML, 2/D
     Route: 048
  3. SENNOCOL [Concomitant]
     Indication: CONSTIPATION
     Dosage: 20 ML, EACH EVENING
     Route: 048
  4. SODIUM PICOSULFATE [Concomitant]
     Indication: CONSTIPATION
     Dosage: 5 ML, EACH EVENING
     Route: 048
  5. CHLORPROMAZINE [Concomitant]
     Indication: AGGRESSION
     Dosage: 25 MG, EACH EVENING
     Route: 048

REACTIONS (8)
  - ABNORMAL BEHAVIOUR [None]
  - AGGRESSION [None]
  - ANXIETY [None]
  - FEELING ABNORMAL [None]
  - INCREASED APPETITE [None]
  - MEMORY IMPAIRMENT [None]
  - MIOSIS [None]
  - PSYCHOMOTOR HYPERACTIVITY [None]
